FAERS Safety Report 10595110 (Version 1)
Quarter: 2014Q4

REPORT INFORMATION
  Report Type: Spontaneous
  Country: BE (occurrence: BE)
  Receive Date: 20141120
  Receipt Date: 20141120
  Transmission Date: 20150529
  Serious: Yes (Other)
  Sender: FDA-Public Use
  Company Number: BE-AMGEN-BELSP2014088872

PATIENT
  Age: 73 Year
  Sex: Male

DRUGS (2)
  1. DECAPEPTYL [Concomitant]
     Active Substance: TRIPTORELIN ACETATE
  2. XGEVA [Suspect]
     Active Substance: DENOSUMAB
     Indication: PROSTATE CANCER
     Dosage: UNK
     Route: 065

REACTIONS (3)
  - Osteonecrosis of jaw [Unknown]
  - Dental caries [Unknown]
  - Infection [Unknown]

NARRATIVE: CASE EVENT DATE: 201406
